FAERS Safety Report 14701309 (Version 1)
Quarter: 2018Q1

REPORT INFORMATION
  Report Type: Spontaneous
  Country: US (occurrence: US)
  Receive Date: 20180328
  Receipt Date: 20180328
  Transmission Date: 20180509
  Serious: Yes (Other)
  Sender: FDA-Public Use
  Company Number: None

PATIENT
  Age: 73 Year
  Sex: Female
  Weight: 82.55 kg

DRUGS (1)
  1. IBRANCE [Suspect]
     Active Substance: PALBOCICLIB
     Dosage: 100MG 1 CQD MOUTH
     Route: 048
     Dates: start: 20171120

REACTIONS (2)
  - Asthenia [None]
  - Pain [None]

NARRATIVE: CASE EVENT DATE: 20180112
